FAERS Safety Report 9373741 (Version 1)
Quarter: 2013Q2

REPORT INFORMATION
  Report Type: Spontaneous
  Country: US (occurrence: US)
  Receive Date: 20130628
  Receipt Date: 20130628
  Transmission Date: 20140414
  Serious: No
  Sender: FDA-Public Use
  Company Number: US-009507513-1305USA014679

PATIENT
  Sex: Male

DRUGS (2)
  1. CLARITIN-D-12 [Suspect]
     Indication: PRODUCT USED FOR UNKNOWN INDICATION
     Dosage: 5 MG, QD
     Route: 048
     Dates: start: 20130510
  2. CLARITIN-D-12 [Suspect]
     Indication: MEDICAL OBSERVATION

REACTIONS (1)
  - Hypersensitivity [Unknown]
